FAERS Safety Report 9769682 (Version 1)
Quarter: 2013Q4

REPORT INFORMATION
  Report Type: Spontaneous
  Country: US (occurrence: US)
  Receive Date: 20131218
  Receipt Date: 20131218
  Transmission Date: 20140711
  Serious: No
  Sender: FDA-Public Use
  Company Number: US-VERTEX PHARMACEUTICALS INC-AE-2011-000411

PATIENT
  Age: 50 Year
  Sex: Male

DRUGS (6)
  1. INCIVEK [Suspect]
     Indication: HEPATITIS C
     Route: 048
     Dates: start: 20110701
  2. PEGASYS [Concomitant]
     Indication: HEPATITIS C
     Route: 058
     Dates: start: 20110701
  3. COPEGUS [Concomitant]
     Indication: HEPATITIS C
     Route: 048
     Dates: start: 20110701
  4. LEXIPRO [Concomitant]
     Route: 048
  5. TRAZADONE [Concomitant]
     Route: 048
  6. BUSPAR [Concomitant]
     Route: 048

REACTIONS (1)
  - Anorectal discomfort [Not Recovered/Not Resolved]
